FAERS Safety Report 21308642 (Version 2)
Quarter: 2022Q3

REPORT INFORMATION
  Report Type: Spontaneous
  Country: JP (occurrence: JP)
  Receive Date: 20220908
  Receipt Date: 20220913
  Transmission Date: 20221026
  Serious: Yes (Other)
  Sender: FDA-Public Use
  Company Number: JP-PFIZER INC-PV202200058373

PATIENT
  Age: 72 Year
  Sex: Female

DRUGS (2)
  1. CELECOXIB [Suspect]
     Active Substance: CELECOXIB
     Dosage: 400 MG, DAILY
     Route: 048
  2. SELEGILINE HYDROCHLORIDE [Concomitant]
     Active Substance: SELEGILINE HYDROCHLORIDE
     Dosage: UNK

REACTIONS (4)
  - Postoperative delirium [Unknown]
  - Arrhythmia [Unknown]
  - Persecutory delusion [Unknown]
  - Crying [Unknown]

NARRATIVE: CASE EVENT DATE: 20220906
